FAERS Safety Report 13061157 (Version 1)
Quarter: 2016Q4

REPORT INFORMATION
  Report Type: Report from Study
  Country: US (occurrence: US)
  Receive Date: 20161226
  Receipt Date: 20161226
  Transmission Date: 20170207
  Serious: No
  Sender: FDA-Public Use
  Company Number: PHEH2015US009300

PATIENT
  Age: 51 Year
  Sex: Female

DRUGS (2)
  1. COSENTYX [Suspect]
     Active Substance: SECUKINUMAB
     Indication: PSORIASIS
     Dosage: 300 MG, EVERY FOUR WEEKS
     Route: 058
     Dates: start: 20150316
  2. COSENTYX [Suspect]
     Active Substance: SECUKINUMAB
     Dosage: 150 MG, QW(EVERY 2 WEEKS)
     Route: 058

REACTIONS (7)
  - Psoriasis [Recovered/Resolved]
  - Drug effect decreased [Unknown]
  - Pharyngeal oedema [Recovered/Resolved]
  - Drug prescribing error [Unknown]
  - Device malfunction [Unknown]
  - Accidental exposure to product [Unknown]
  - Cough [Recovered/Resolved]

NARRATIVE: CASE EVENT DATE: 20150420
